FAERS Safety Report 8023205-X (Version None)
Quarter: 2012Q1

REPORT INFORMATION
  Report Type: 
  Country: None (occurrence: None)
  Receive Date: 20120104
  Receipt Date: 20111223
  Transmission Date: 20120608
  Serious: Yes (Hospitalization)
  Sender: FDA-Public Use
  Company Number: US-ELI_LILLY_AND_COMPANY-US201111007297

PATIENT
  Sex: Male
  Weight: 119.27 kg

DRUGS (1)
  1. HUMATROPE [Suspect]
     Dosage: 0.6 MG, UNKNOWN
     Route: 058
     Dates: start: 20110204

REACTIONS (1)
  - KNEE ARTHROPLASTY [None]
